FAERS Safety Report 25393174 (Version 1)
Quarter: 2025Q2

REPORT INFORMATION
  Report Type: Report from Study
  Country: DE (occurrence: DE)
  Receive Date: 20250604
  Receipt Date: 20250604
  Transmission Date: 20250717
  Serious: Yes (Hospitalization)
  Sender: ACCORD
  Company Number: None

PATIENT
  Age: 61 Year
  Sex: Female

DRUGS (3)
  1. METHOTREXATE [Suspect]
     Active Substance: METHOTREXATE
     Indication: Product used for unknown indication
  2. ABATACEPT [Suspect]
     Active Substance: ABATACEPT
     Indication: Product used for unknown indication
     Dosage: 750MG/EVERY 4 WEEKS
     Dates: start: 20240205
  3. FILGOTINIB [Suspect]
     Active Substance: FILGOTINIB
     Indication: Product used for unknown indication
     Dates: start: 20240131

REACTIONS (7)
  - Osteoarthritis [Unknown]
  - Cough [Unknown]
  - Tendon disorder [Unknown]
  - Tendon rupture [Unknown]
  - Synovitis [Unknown]
  - Tenosynovitis [Unknown]
  - Bursitis [Unknown]

NARRATIVE: CASE EVENT DATE: 20240401
